FAERS Safety Report 18110351 (Version 1)
Quarter: 2020Q3

REPORT INFORMATION
  Report Type: Report from Study
  Country: CA (occurrence: CA)
  Receive Date: 20200804
  Receipt Date: 20200804
  Transmission Date: 20201103
  Serious: Yes (Other)
  Sender: FDA-Public Use
  Company Number: CA-AMGEN-CANSL2020023828

PATIENT
  Age: 75 Year
  Sex: Male

DRUGS (7)
  1. PROLIA [Suspect]
     Active Substance: DENOSUMAB
     Indication: OSTEOPOROSIS
     Dosage: UNK
     Route: 058
  2. AVODART [Concomitant]
     Active Substance: DUTASTERIDE
     Indication: NEUROPATHY PERIPHERAL
     Dosage: UNK
  3. LISINOPRIL. [Concomitant]
     Active Substance: LISINOPRIL
     Dosage: UNK
  4. PANTOLOC [Concomitant]
     Active Substance: PANTOPRAZOLE SODIUM
     Dosage: UNK
  5. CRESTOR [Concomitant]
     Active Substance: ROSUVASTATIN CALCIUM
     Dosage: UNK
  6. LYRICA [Concomitant]
     Active Substance: PREGABALIN
     Indication: NEUROPATHY PERIPHERAL
     Dosage: UNK
  7. IMBRUVICA [Suspect]
     Active Substance: IBRUTINIB
     Indication: CHRONIC LYMPHOCYTIC LEUKAEMIA
     Dosage: UNK
     Route: 048

REACTIONS (10)
  - Rash pruritic [Recovering/Resolving]
  - Spinal fracture [Unknown]
  - Crepitations [Unknown]
  - Increased tendency to bruise [Unknown]
  - Acne [Recovering/Resolving]
  - Contusion [Unknown]
  - Joint noise [Unknown]
  - Arthralgia [Unknown]
  - Tachycardia [Unknown]
  - Ventricular extrasystoles [Unknown]
